FAERS Safety Report 14709727 (Version 5)
Quarter: 2019Q3

REPORT INFORMATION
  Report Type: Spontaneous
  Country: US (occurrence: US)
  Receive Date: 20180403
  Receipt Date: 20190830
  Transmission Date: 20191004
  Serious: Yes (Other)
  Sender: FDA-Public Use
  Company Number: US-SA-2018SA094014

PATIENT
  Age: 67 Year
  Sex: Female

DRUGS (3)
  1. NOVOLOG [Concomitant]
     Active Substance: INSULIN ASPART
     Dosage: UNKNOWN
     Route: 065
  2. LANTUS SOLOSTAR [Suspect]
     Active Substance: INSULIN GLARGINE
     Dosage: 40 U, QD
     Route: 065
  3. LANTUS SOLOSTAR [Suspect]
     Active Substance: INSULIN GLARGINE
     Indication: TYPE 2 DIABETES MELLITUS
     Dosage: 44 DF,QD
     Route: 051
     Dates: start: 2016

REACTIONS (10)
  - Photosensitivity reaction [Unknown]
  - Atrial fibrillation [Unknown]
  - Injection site pain [Unknown]
  - Cataract [Unknown]
  - Unevaluable event [Unknown]
  - Injection site vesicles [Recovering/Resolving]
  - Systemic lupus erythematosus [Unknown]
  - Headache [Unknown]
  - Migraine [Unknown]
  - Wrong technique in device usage process [Unknown]
